FAERS Safety Report 7606126-3 (Version None)
Quarter: 2011Q3

REPORT INFORMATION
  Report Type: 
  Country: None (occurrence: None)
  Receive Date: 20110713
  Receipt Date: 20110706
  Transmission Date: 20111222
  Serious: Yes (Hospitalization)
  Sender: FDA-Public Use
  Company Number: US-NOVOPROD-331326

PATIENT
  Age: 54 Year
  Sex: Female
  Weight: 111 kg

DRUGS (4)
  1. CRESTOR [Concomitant]
     Indication: BLOOD CHOLESTEROL INCREASED
  2. VICTOZA [Suspect]
     Indication: DECREASED APPETITE
     Dosage: 1.8 MG, QD
     Route: 058
     Dates: start: 20110622
  3. VICTOZA [Suspect]
     Indication: TYPE 2 DIABETES MELLITUS
     Dosage: 1.8 MG, QD
     Route: 058
     Dates: start: 20110101, end: 20110601
  4. LOVAZA [Concomitant]
     Indication: BLOOD CHOLESTEROL INCREASED

REACTIONS (3)
  - ABDOMINAL DISCOMFORT [None]
  - VOMITING [None]
  - NAUSEA [None]
